FAERS Safety Report 18268175 (Version 1)
Quarter: 2020Q3

REPORT INFORMATION
  Report Type: Spontaneous
  Country: US (occurrence: US)
  Receive Date: 20200915
  Receipt Date: 20200915
  Transmission Date: 20201103
  Serious: Yes (Other)
  Sender: FDA-Public Use
  Company Number: None

PATIENT
  Age: 55 Year
  Sex: Male
  Weight: 81.54 kg

DRUGS (7)
  1. BRAFTOVI [Suspect]
     Active Substance: ENCORAFENIB
     Indication: MALIGNANT MELANOMA
     Route: 048
     Dates: start: 20200323, end: 20200915
  2. KETOCONAZOLE. [Concomitant]
     Active Substance: KETOCONAZOLE
  3. NAPROXEN. [Concomitant]
     Active Substance: NAPROXEN
  4. TERBINAFINE. [Concomitant]
     Active Substance: TERBINAFINE
  5. PERCOCET [Concomitant]
     Active Substance: ACETAMINOPHEN\OXYCODONE HYDROCHLORIDE
  6. OXYCODONE [Concomitant]
     Active Substance: OXYCODONE
  7. MEKTOVI [Suspect]
     Active Substance: BINIMETINIB
     Indication: MALIGNANT MELANOMA
     Route: 048
     Dates: start: 20200323, end: 20200915

REACTIONS (1)
  - Hospice care [None]

NARRATIVE: CASE EVENT DATE: 20200915
